FAERS Safety Report 7676624-5 (Version None)
Quarter: 2011Q3

REPORT INFORMATION
  Report Type: 
  Country: None (occurrence: None)
  Receive Date: 20110809
  Receipt Date: 20110809
  Transmission Date: 20111222
  Serious: Yes (Life-Threatening)
  Sender: FDA-Public Use
  Company Number: None

PATIENT
  Sex: Female
  Weight: 56.6996 kg

DRUGS (1)
  1. URSODIOL [Suspect]
     Indication: BILE DUCT STONE
     Dates: start: 20110501

REACTIONS (4)
  - LIVER FUNCTION TEST ABNORMAL [None]
  - PRODUCT SUBSTITUTION ISSUE [None]
  - URTICARIA [None]
  - BILE DUCT STONE [None]
